FAERS Safety Report 24235678 (Version 1)
Quarter: 2024Q3

REPORT INFORMATION
  Report Type: Spontaneous
  Country: US (occurrence: US)
  Receive Date: 20240822
  Receipt Date: 20240822
  Transmission Date: 20241016
  Serious: No
  Sender: GLAXOSMITHKLINE
  Company Number: US-GSK-US2024100204

PATIENT
  Sex: Female

DRUGS (1)
  1. BENLYSTA [Suspect]
     Active Substance: BELIMUMAB
     Indication: Lupus myositis
     Dosage: UNK

REACTIONS (3)
  - Product dispensing error [Unknown]
  - Product use in unapproved indication [Unknown]
  - Product dose omission issue [Unknown]
